FAERS Safety Report 13334419 (Version 1)
Quarter: 2017Q1

REPORT INFORMATION
  Report Type: Spontaneous
  Country: JP (occurrence: JP)
  Receive Date: 20170314
  Receipt Date: 20170314
  Transmission Date: 20170428
  Serious: Yes (Other)
  Sender: FDA-Public Use
  Company Number: JP-JNJFOC-20170311231

PATIENT
  Weight: 1.17 kg

DRUGS (5)
  1. INFLIXIMAB, RECOMBINANT [Suspect]
     Active Substance: INFLIXIMAB
     Indication: COLITIS ULCERATIVE
     Dosage: 1ST TRIMESTER (1-12 WK)
     Route: 042
  2. INFLIXIMAB, RECOMBINANT [Suspect]
     Active Substance: INFLIXIMAB
     Indication: COLITIS ULCERATIVE
     Dosage: 2ND TRIMESTER (13-26 WK)
     Route: 042
  3. 5-ASA [Suspect]
     Active Substance: MESALAMINE
     Indication: COLITIS ULCERATIVE
     Dosage: 1 ST TRIMESTER TO 3RD TRIMESTER
     Route: 065
  4. INFLIXIMAB, RECOMBINANT [Suspect]
     Active Substance: INFLIXIMAB
     Indication: COLITIS ULCERATIVE
     Dosage: 3RD TRIMESTER (27-42 WK)
     Route: 042
  5. 5-ASA [Suspect]
     Active Substance: MESALAMINE
     Indication: COLITIS ULCERATIVE
     Dosage: 1ST TRIMESTER TO 3RD TRIMESTER
     Route: 065

REACTIONS (3)
  - Premature baby [Unknown]
  - Low birth weight baby [Unknown]
  - Foetal exposure during pregnancy [Recovered/Resolved]
